FAERS Safety Report 4618033-9 (Version None)
Quarter: 2005Q1

REPORT INFORMATION
  Report Type: 
  Country: None (occurrence: None)
  Receive Date: 20050324
  Receipt Date: 20050228
  Transmission Date: 20050727
  Serious: Yes (Life-Threatening, Other)
  Sender: FDA-Public Use
  Company Number: US-AMGEN-US117767

PATIENT
  Age: 48 Year
  Sex: Female

DRUGS (2)
  1. ENBREL [Suspect]
     Indication: PSORIASIS
     Route: 058
     Dates: start: 20040603, end: 20050201
  2. SORIATANE [Concomitant]
     Dates: start: 20040817, end: 20050201

REACTIONS (1)
  - NON-HODGKIN'S LYMPHOMA STAGE I [None]
